FAERS Safety Report 12119520 (Version 2)
Quarter: 2016Q1

REPORT INFORMATION
  Report Type: Spontaneous
  Country: US (occurrence: US)
  Receive Date: 20160226
  Receipt Date: 20160302
  Transmission Date: 20160526
  Serious: Yes (Death)
  Sender: FDA-Public Use
  Company Number: US-CELGENE-USA-2016023658

PATIENT
  Age: 43 Year
  Sex: Male

DRUGS (6)
  1. ETOPOSIDE. [Concomitant]
     Active Substance: ETOPOSIDE
     Indication: ADULT T-CELL LYMPHOMA/LEUKAEMIA
     Route: 065
  2. PREDNISONE. [Concomitant]
     Active Substance: PREDNISONE
     Indication: ADULT T-CELL LYMPHOMA/LEUKAEMIA
     Route: 065
  3. VINCRISTINE [Concomitant]
     Active Substance: VINCRISTINE
     Indication: ADULT T-CELL LYMPHOMA/LEUKAEMIA
     Route: 065
  4. CISPLATIN. [Concomitant]
     Active Substance: CISPLATIN
     Indication: ADULT T-CELL LYMPHOMA/LEUKAEMIA
     Route: 065
  5. ADRIAMYCIN [Concomitant]
     Active Substance: DOXORUBICIN HYDROCHLORIDE
     Indication: ADULT T-CELL LYMPHOMA/LEUKAEMIA
     Route: 065
  6. ISTODAX [Suspect]
     Active Substance: ROMIDEPSIN
     Indication: ADULT T-CELL LYMPHOMA/LEUKAEMIA
     Dosage: 14 MILLIGRAM/SQ. METER
     Route: 041

REACTIONS (4)
  - Wound infection [Fatal]
  - Lymphocytosis [Unknown]
  - Lymphadenopathy [Unknown]
  - Hypercalcaemia [Unknown]
